FAERS Safety Report 11884957 (Version 2)
Quarter: 2016Q1

REPORT INFORMATION
  Report Type: Spontaneous
  Country: US (occurrence: US)
  Receive Date: 20160104
  Receipt Date: 20160108
  Transmission Date: 20160526
  Serious: Yes (Life-Threatening, Hospitalization)
  Sender: FDA-Public Use
  Company Number: US-WEST-WARD PHARMACEUTICALS CORP.-US-H14001-15-02218

PATIENT
  Age: 51 Year
  Sex: Male

DRUGS (4)
  1. HEPARIN [Suspect]
     Active Substance: HEPARIN SODIUM
     Indication: THROMBOSIS PROPHYLAXIS
     Route: 058
  2. HEPARIN [Suspect]
     Active Substance: HEPARIN SODIUM
     Route: 041
  3. HEPARIN [Suspect]
     Active Substance: HEPARIN SODIUM
     Indication: ANGIOGRAM
     Route: 013
  4. HEPARIN [Suspect]
     Active Substance: HEPARIN SODIUM
     Route: 058

REACTIONS (6)
  - Cardiac arrest [Recovered/Resolved]
  - Acute respiratory failure [Recovered/Resolved]
  - Cerebral haemorrhage [Recovered/Resolved]
  - Disseminated intravascular coagulation [Recovered/Resolved]
  - Heparin-induced thrombocytopenia [Recovered/Resolved]
  - Incorrect route of drug administration [Recovered/Resolved]
